FAERS Safety Report 6225845-7 (Version None)
Quarter: 2009Q2

REPORT INFORMATION
  Report Type: 
  Country: None (occurrence: None)
  Receive Date: 20090612
  Receipt Date: 20090528
  Transmission Date: 20091009
  Serious: No
  Sender: FDA-Public Use
  Company Number: US-ABBOTT-09P-163-0571308-00

PATIENT
  Sex: Female
  Weight: 50.394 kg

DRUGS (7)
  1. HUMIRA [Suspect]
     Indication: CROHN'S DISEASE
     Route: 058
     Dates: start: 20080101, end: 20080701
  2. HUMIRA [Suspect]
     Route: 058
     Dates: start: 20080701, end: 20090528
  3. CLARITIN [Concomitant]
     Indication: SEASONAL ALLERGY
     Dosage: 1 IN 1 DAYS, PRN
  4. FOLIC ACID [Concomitant]
     Indication: VITAMIN SUPPLEMENTATION
     Route: 048
  5. VITAMIN TAB [Concomitant]
     Indication: PREGNANCY
     Route: 048
  6. STOOL SOFTENER [Concomitant]
     Indication: DRUG USE FOR UNKNOWN INDICATION
  7. LIALDA [Concomitant]
     Indication: CROHN'S DISEASE
     Route: 048

REACTIONS (3)
  - ABDOMINAL PAIN [None]
  - DIARRHOEA [None]
  - HERPES ZOSTER [None]
